FAERS Safety Report 5066552-6 (Version None)
Quarter: 2006Q3

REPORT INFORMATION
  Report Type: 
  Country: None (occurrence: None)
  Receive Date: 20060726
  Receipt Date: 20060713
  Transmission Date: 20061208
  Serious: Yes (Other)
  Sender: FDA-Public Use
  Company Number: 2006079451

PATIENT
  Sex: Male
  Weight: 83.9154 kg

DRUGS (5)
  1. VIAGRA [Suspect]
     Indication: ERECTILE DYSFUNCTION
     Dosage: (50 MG, UNKNOWN)
  2. METOPROLOL (METOPROLOL) [Suspect]
     Indication: PALPITATIONS
     Dosage: (1 IN 1 D), UNKNOWN
  3. ALLERGY MEDICATION (ALLERGY MEDICATION) [Concomitant]
     Indication: HYPERSENSITIVITY
  4. COUGH AND COLD PREPARATIONS (COUGH AND COLD PREPARATIONS) [Suspect]
     Indication: NASOPHARYNGITIS
  5. LISINOPRIL [Concomitant]

REACTIONS (6)
  - FEELING HOT [None]
  - INCORRECT DOSE ADMINISTERED [None]
  - MULTIPLE ALLERGIES [None]
  - NASOPHARYNGITIS [None]
  - PALPITATIONS [None]
  - PROSTATE CANCER [None]
